FAERS Safety Report 10669449 (Version 4)
Quarter: 2018Q3

REPORT INFORMATION
  Report Type: Report from Study
  Country: JP (occurrence: JP)
  Receive Date: 20141222
  Receipt Date: 20180928
  Transmission Date: 20181010
  Serious: Yes (Death, Hospitalization)
  Sender: FDA-Public Use
  Company Number: JP-BAUSCH-BL-2014-011101

PATIENT
  Age: 61 Year
  Sex: Male

DRUGS (13)
  1. CHOREAZINE TABLETS 12.5 MG [Suspect]
     Active Substance: TETRABENAZINE
     Indication: HUNTINGTON^S DISEASE
     Route: 048
     Dates: start: 20130415
  2. ALBUMIN TANNATE [Concomitant]
     Active Substance: ALBUMIN BOVINE\TANNIC ACID
     Indication: PRODUCT USED FOR UNKNOWN INDICATION
     Route: 065
  3. PICILLIBACTA [Concomitant]
     Active Substance: AMPICILLIN SODIUM\SULBACTAM SODIUM
     Route: 042
     Dates: start: 20141022, end: 20141028
  4. CERCINE [Concomitant]
     Active Substance: DIAZEPAM
     Indication: PRODUCT USED FOR UNKNOWN INDICATION
     Route: 048
     Dates: start: 20130520
  5. BENZALIN [Concomitant]
     Active Substance: NITRAZEPAM
     Dosage: 1 DF/ AS NECESSARY
     Route: 048
     Dates: end: 20141222
  6. MIYA?BM [Concomitant]
     Active Substance: CLOSTRIDIUM BUTYRICUM SPORES STRAIN M-55
     Indication: PRODUCT USED FOR UNKNOWN INDICATION
     Route: 065
  7. ADSORBIN [Concomitant]
     Active Substance: ALUMINUM SILICATE
     Indication: PRODUCT USED FOR UNKNOWN INDICATION
     Route: 065
  8. CHOREAZINE TABLETS 12.5 MG [Suspect]
     Active Substance: TETRABENAZINE
     Route: 048
     Dates: end: 20141222
  9. PICILLIBACTA [Concomitant]
     Active Substance: AMPICILLIN SODIUM\SULBACTAM SODIUM
     Route: 042
     Dates: start: 20141005, end: 20141015
  10. CERCINE [Concomitant]
     Active Substance: DIAZEPAM
     Route: 048
     Dates: end: 20141222
  11. PICILLIBACTA [Concomitant]
     Active Substance: AMPICILLIN SODIUM\SULBACTAM SODIUM
     Indication: PRODUCT USED FOR UNKNOWN INDICATION
     Route: 042
     Dates: start: 20140826, end: 20140901
  12. ZOSYN [Concomitant]
     Active Substance: PIPERACILLIN SODIUM\TAZOBACTAM SODIUM
     Indication: PRODUCT USED FOR UNKNOWN INDICATION
     Route: 042
     Dates: start: 20140902, end: 20140911
  13. BENZALIN [Concomitant]
     Active Substance: NITRAZEPAM
     Indication: PRODUCT USED FOR UNKNOWN INDICATION
     Route: 048
     Dates: start: 20130520

REACTIONS (5)
  - Pneumonia [Recovering/Resolving]
  - Death [Fatal]
  - Pneumonia [Recovering/Resolving]
  - Pneumonia [Unknown]
  - Pneumothorax [Unknown]

NARRATIVE: CASE EVENT DATE: 20140826
